FAERS Safety Report 4957516-9 (Version None)
Quarter: 2006Q1

REPORT INFORMATION
  Report Type: 
  Country: None (occurrence: None)
  Receive Date: 20060330
  Receipt Date: 20051212
  Transmission Date: 20060701
  Serious: Yes (Other)
  Sender: FDA-Public Use
  Company Number: US-GLAXOSMITHKLINE-A0585538A

PATIENT
  Age: 52 Year
  Sex: Female

DRUGS (2)
  1. FLOVENT [Suspect]
     Indication: ASTHMA
     Dosage: 1PUFF PER DAY
     Route: 055
     Dates: start: 19990101
  2. ALBUTEROL [Concomitant]
     Route: 055

REACTIONS (5)
  - ASTHMA [None]
  - CHAPPED LIPS [None]
  - GLOSSITIS [None]
  - ORAL PAIN [None]
  - STOMATITIS [None]
